FAERS Safety Report 8435877-6 (Version None)
Quarter: 2012Q2

REPORT INFORMATION
  Report Type: 
  Country: None (occurrence: None)
  Receive Date: 20120614
  Receipt Date: 20120606
  Transmission Date: 20120825
  Serious: Yes (Hospitalization, Other)
  Sender: FDA-Public Use
  Company Number: CA-ROCHE-1076123

PATIENT
  Sex: Male
  Weight: 79.45 kg

DRUGS (12)
  1. PRADAXA [Concomitant]
  2. DIDROCAL [Concomitant]
  3. ACTEMRA [Suspect]
     Indication: RHEUMATOID ARTHRITIS
     Route: 042
     Dates: start: 20111215, end: 20120519
  4. SPIRIVA [Concomitant]
  5. PREDNISONE TAB [Concomitant]
  6. COLCHICINE [Concomitant]
  7. SYNTHROID [Concomitant]
  8. LANSOPRAZOLE [Concomitant]
  9. SPIRONOLACTONE [Concomitant]
  10. ADVAIR DISKUS 100/50 [Concomitant]
  11. BISOPROLOL FUMARATE [Concomitant]
  12. LIPITOR [Concomitant]

REACTIONS (3)
  - ATRIAL FIBRILLATION [None]
  - ABDOMINAL PAIN [None]
  - PANCREATIC CARCINOMA [None]
